FAERS Safety Report 8064587-2 (Version None)
Quarter: 2012Q1

REPORT INFORMATION
  Report Type: 
  Country: None (occurrence: None)
  Receive Date: 20120123
  Receipt Date: 20120119
  Transmission Date: 20120608
  Serious: Yes (Hospitalization, Disabling)
  Sender: FDA-Public Use
  Company Number: US-MERCK-1201USA00840

PATIENT
  Age: 66 Year
  Sex: Male

DRUGS (3)
  1. JANUMET [Suspect]
     Route: 048
     Dates: start: 20060101, end: 20111202
  2. LIPITOR [Concomitant]
     Route: 065
  3. ASPIRIN [Concomitant]
     Route: 065

REACTIONS (5)
  - MOVEMENT DISORDER [None]
  - DUODENAL ULCER [None]
  - ORAL DISORDER [None]
  - MALAISE [None]
  - WEIGHT DECREASED [None]
